FAERS Safety Report 7802638-8 (Version None)
Quarter: 2011Q4

REPORT INFORMATION
  Report Type: 
  Country: None (occurrence: None)
  Receive Date: 20111007
  Receipt Date: 20110928
  Transmission Date: 20120403
  Serious: Yes (Hospitalization)
  Sender: FDA-Public Use
  Company Number: PHHY2010MX78931

PATIENT
  Age: 83 Year
  Sex: Female

DRUGS (3)
  1. EXELON [Suspect]
     Indication: DEMENTIA ALZHEIMER'S TYPE
     Dosage: 4.6 MG, ONE PATCH DAILY
     Route: 062
     Dates: start: 20100201, end: 20101111
  2. EXELON [Suspect]
     Dosage: 9.5 MG, UNK
  3. EXELON [Suspect]
     Dosage: UNK UKN, UNK
     Dates: start: 20101115

REACTIONS (2)
  - FALL [None]
  - FEMUR FRACTURE [None]
